FAERS Safety Report 16491940 (Version 1)
Quarter: 2019Q2

REPORT INFORMATION
  Report Type: Spontaneous
  Country: ES (occurrence: ES)
  Receive Date: 20190628
  Receipt Date: 20190628
  Transmission Date: 20190711
  Serious: Yes (Life-Threatening, Hospitalization)
  Sender: FDA-Public Use
  Company Number: ES-ACCORD-135250

PATIENT
  Age: 3 Year
  Sex: Female

DRUGS (11)
  1. MITOXANTRONE [Interacting]
     Active Substance: MITOXANTRONE HYDROCHLORIDE
     Indication: ACUTE MYELOID LEUKAEMIA
     Dosage: SHOP-LAM 2007
     Route: 042
     Dates: start: 20160401, end: 201605
  2. METHOTREXATE. [Interacting]
     Active Substance: METHOTREXATE
     Indication: STEM CELL TRANSPLANT
     Dosage: SHORT COURSE 4 DOSES
     Route: 065
     Dates: start: 20160616, end: 201606
  3. ONCOTIOTEPA (THIOTEPA) [Interacting]
     Active Substance: THIOTEPA
     Indication: BONE MARROW CONDITIONING REGIMEN
     Route: 042
     Dates: start: 20160608, end: 20160609
  4. ETOPOSIDE. [Suspect]
     Active Substance: ETOPOSIDE
     Indication: ACUTE MYELOID LEUKAEMIA
     Dosage: SHOP-LAM 2007
     Route: 042
     Dates: start: 20160201, end: 20160401
  5. BUSULFAN. [Interacting]
     Active Substance: BUSULFAN
     Indication: BONE MARROW CONDITIONING REGIMEN
     Route: 042
     Dates: start: 20160608, end: 20160610
  6. FLUDARABINE/FLUDARABINE PHOSPHATE [Interacting]
     Active Substance: FLUDARABINE PHOSPHATE
     Indication: BONE MARROW CONDITIONING REGIMEN
     Route: 042
     Dates: start: 20160608, end: 20160610
  7. CYTOSINE ARABINOSIDE [Interacting]
     Active Substance: CYTARABINE
     Indication: ACUTE MYELOID LEUKAEMIA
     Dosage: (SHOP-LAM 2007)
     Route: 042
     Dates: start: 20160129, end: 201605
  8. IDARUBICIN [Interacting]
     Active Substance: IDARUBICIN
     Indication: ACUTE MYELOID LEUKAEMIA
     Dosage: (SHOP-LAM 2007)
     Route: 042
     Dates: start: 20160201, end: 20160401
  9. MYCOPHENOLIC ACID. [Interacting]
     Active Substance: MYCOPHENOLIC ACID
     Indication: STEM CELL TRANSPLANT
     Route: 065
     Dates: start: 20160724, end: 201609
  10. THYROGLOBULIN [Interacting]
     Active Substance: THYROGLOBULIN
     Indication: BONE MARROW CONDITIONING REGIMEN
     Route: 042
     Dates: start: 20160608, end: 20160610
  11. CICLOSPORIN [Interacting]
     Active Substance: CYCLOSPORINE
     Indication: STEM CELL TRANSPLANT
     Route: 042
     Dates: start: 20160614, end: 20161014

REACTIONS (2)
  - Drug interaction [Unknown]
  - Post transplant lymphoproliferative disorder [Recovered/Resolved with Sequelae]

NARRATIVE: CASE EVENT DATE: 20160923
